FAERS Safety Report 13817939 (Version 1)
Quarter: 2017Q3

REPORT INFORMATION
  Report Type: Spontaneous
  Country: US (occurrence: US)
  Receive Date: 20170731
  Receipt Date: 20170731
  Transmission Date: 20171127
  Serious: No
  Sender: FDA-Public Use
  Company Number: US-ROCHE-718398

PATIENT
  Age: 63 Year
  Sex: Female

DRUGS (2)
  1. TUMS [Concomitant]
     Active Substance: CALCIUM CARBONATE
     Dosage: DOSE:2X750 MG
     Route: 065
  2. BONIVA [Suspect]
     Active Substance: IBANDRONATE SODIUM
     Indication: OSTEOPOROSIS
     Route: 042

REACTIONS (8)
  - Breast enlargement [Not Recovered/Not Resolved]
  - Abdominal distension [Not Recovered/Not Resolved]
  - Back pain [Unknown]
  - Pain [Not Recovered/Not Resolved]
  - Blood cholesterol increased [Not Recovered/Not Resolved]
  - Burning sensation [Not Recovered/Not Resolved]
  - Fluid retention [Not Recovered/Not Resolved]
  - Headache [Unknown]

NARRATIVE: CASE EVENT DATE: 2009
